FAERS Safety Report 8572042-6 (Version None)
Quarter: 2012Q2

REPORT INFORMATION
  Report Type: 
  Country: None (occurrence: None)
  Receive Date: 20120418
  Receipt Date: 20100702
  Transmission Date: 20120825
  Serious: Yes (Other)
  Sender: FDA-Public Use
  Company Number: PHHY2010US44263

PATIENT
  Age: 47 Year
  Sex: Male

DRUGS (1)
  1. DIOVAN HCT [Suspect]
     Dosage: 320 MG/12.5 MG

REACTIONS (2)
  - RENAL DISORDER [None]
  - PROTEINURIA [None]
